FAERS Safety Report 26174708 (Version 1)
Quarter: 2025Q4

REPORT INFORMATION
  Report Type: Spontaneous
  Country: US (occurrence: None)
  Receive Date: 20251217
  Receipt Date: 20251217
  Transmission Date: 20260118
  Serious: Yes (Other)
  Sender: FDA-CTU
  Company Number: None

PATIENT
  Age: 60 Year
  Sex: Male
  Weight: 93.6 kg

DRUGS (2)
  1. FLUTICASONE PROPIONATE SPRAY, METERED [Suspect]
     Active Substance: FLUTICASONE PROPIONATE
     Indication: Multiple allergies
     Dosage: FREQUENCY : DAILY;
     Route: 055
  2. Insulin/high blood pressure [Concomitant]

REACTIONS (3)
  - Headache [None]
  - Nasal dryness [None]
  - Epistaxis [None]

NARRATIVE: CASE EVENT DATE: 20250620
